FAERS Safety Report 11784816 (Version 1)
Quarter: 2015Q4

REPORT INFORMATION
  Report Type: Spontaneous
  Country: FR (occurrence: FR)
  Receive Date: 20151130
  Receipt Date: 20151130
  Transmission Date: 20160305
  Serious: Yes (Other)
  Sender: FDA-Public Use
  Company Number: FR-009507513-1511FRA015293

PATIENT
  Age: 46 Year
  Sex: Male

DRUGS (4)
  1. EMEND [Suspect]
     Active Substance: APREPITANT
     Dosage: 80 MG ON DAY 2
     Route: 048
  2. EMEND [Suspect]
     Active Substance: APREPITANT
     Dosage: 125 MG ON DAY 1
     Route: 048
  3. EMEND [Suspect]
     Active Substance: APREPITANT
     Dosage: 80 MG ON DAY 3
     Route: 048
  4. HOLOXAN [Concomitant]
     Active Substance: IFOSFAMIDE

REACTIONS (1)
  - Encephalopathy [Unknown]
